FAERS Safety Report 8988307 (Version 1)
Quarter: 2012Q4

REPORT INFORMATION
  Report Type: 
  Country: GB (occurrence: GB)
  Receive Date: 20121227
  Receipt Date: 20121227
  Transmission Date: 20130627
  Serious: Yes (Hospitalization, Other)
  Sender: FDA-Public Use
  Company Number: GB-PFIZER INC-2012294063

PATIENT
  Age: 75 Year
  Sex: Female
  Weight: 86.7 kg

DRUGS (7)
  1. GENOTROPIN [Suspect]
     Dosage: 0.6 mg, 1x/day, 7 injections/week
     Route: 058
     Dates: start: 20060620
  2. PANTOPRAZOLE [Concomitant]
     Dosage: UNK
  3. PROPIVERINE [Concomitant]
     Dosage: UNK
  4. RISEDRONATE [Concomitant]
     Indication: OSTEOPOROSIS
     Dosage: UNK
  5. HYDROCORTISONE [Concomitant]
     Indication: ACTH DECREASED
     Dosage: UNK
     Dates: start: 20010330
  6. THYROXINE [Concomitant]
     Indication: TSH DECREASED
     Dosage: UNK
     Dates: start: 20010330
  7. THYROXINE [Concomitant]
     Indication: PRIMARY HYPOTHYROIDISM

REACTIONS (1)
  - Pituitary tumour [Unknown]
